FAERS Safety Report 10943913 (Version 2)
Quarter: 2015Q2

REPORT INFORMATION
  Report Type: Spontaneous
  Country: JP (occurrence: JP)
  Receive Date: 20150323
  Receipt Date: 20150512
  Transmission Date: 20150821
  Serious: Yes (Hospitalization, Other)
  Sender: FDA-Public Use
  Company Number: JP-AMGEN-JPNSP2015026275

PATIENT
  Age: 84 Year
  Sex: Male
  Weight: 56 kg

DRUGS (42)
  1. INTRALIPOS [Concomitant]
     Active Substance: SOYBEAN OIL
     Dosage: 100 ML, UNK
     Route: 041
     Dates: start: 20150311, end: 20150311
  2. ATARAX-P                           /00058402/ [Concomitant]
     Active Substance: HYDROXYZINE HYDROCHLORIDE
     Indication: INSOMNIA
     Dosage: 25 MG, UNK
     Route: 041
     Dates: start: 20150307, end: 20150316
  3. MEROPEN                            /01250501/ [Suspect]
     Active Substance: MEROPENEM
     Indication: FEBRILE NEUTROPENIA
     Dosage: 1 G, UNK
     Route: 041
     Dates: start: 20150309, end: 20150309
  4. INTRALIPOS [Concomitant]
     Active Substance: SOYBEAN OIL
     Dosage: 100 ML, UNK
     Route: 041
     Dates: start: 20150313, end: 20150314
  5. ALBUMINAR [Concomitant]
     Active Substance: ALBUMIN (HUMAN)
     Indication: HYPOALBUMINAEMIA
     Dosage: 25 G, UNK
     Route: 041
     Dates: start: 20150310, end: 20150312
  6. HISHIPHAGENC [Concomitant]
     Dosage: 40 ML, UNK
     Route: 042
     Dates: start: 20150319, end: 20150319
  7. LASIX [Suspect]
     Active Substance: FUROSEMIDE
     Indication: CARDIAC FAILURE CONGESTIVE
     Dosage: 80 MG, UNK
     Route: 041
     Dates: start: 20150303, end: 20150303
  8. VFEND [Suspect]
     Active Substance: VORICONAZOLE
     Indication: BRONCHOPULMONARY ASPERGILLOSIS
     Dosage: 600 MG, UNK
     Route: 041
     Dates: start: 20150307, end: 20150307
  9. BAKTAR [Concomitant]
     Active Substance: SULFAMETHOXAZOLE\TRIMETHOPRIM
     Dosage: 0.5 DF, QD
     Route: 048
     Dates: start: 20150311
  10. ITRIZOLE [Concomitant]
     Active Substance: ITRACONAZOLE
     Indication: ANTIFUNGAL PROPHYLAXIS
     Dosage: 20 ML, QD
     Route: 048
     Dates: start: 20150225, end: 20150301
  11. ASPARA POTASSIUM [Concomitant]
     Active Substance: POTASSIUM ASPARTATE
     Indication: HYPOKALAEMIA
     Dosage: 20 ML, UNK
     Route: 041
     Dates: start: 20150303, end: 20150304
  12. LASIX [Suspect]
     Active Substance: FUROSEMIDE
     Dosage: 20 MG, UNK
     Route: 041
     Dates: start: 20150313, end: 20150316
  13. MEROPEN                            /01250501/ [Suspect]
     Active Substance: MEROPENEM
     Dosage: 2 G, UNK
     Route: 041
     Dates: start: 20150310, end: 20150310
  14. ELNEOPA NO.1 [Concomitant]
     Dosage: 1500 ML, UNK
     Route: 041
     Dates: start: 20150304, end: 20150304
  15. HISHIPHAGENC [Concomitant]
     Dosage: 80 ML, UNK
     Route: 042
     Dates: start: 20150317, end: 20150318
  16. LASTET [Concomitant]
     Active Substance: ETOPOSIDE
     Indication: ANGIOIMMUNOBLASTIC T-CELL LYMPHOMA
     Dosage: UNK
     Route: 048
     Dates: start: 20150204
  17. G-LASTA [Suspect]
     Active Substance: PEGFILGRASTIM
     Indication: COLONY STIMULATING FACTOR PROPHYLAXIS
     Dosage: 3.6 MG, QD
     Route: 058
     Dates: start: 20150225, end: 20150225
  18. FUNGUARD [Concomitant]
     Active Substance: MICAFUNGIN SODIUM
     Indication: BRONCHOPULMONARY ASPERGILLOSIS
     Dosage: 150 MG, UNK
     Route: 041
     Dates: start: 20150302, end: 20150308
  19. FUNGUARD [Concomitant]
     Active Substance: MICAFUNGIN SODIUM
     Dosage: 150 MG, UNK
     Route: 041
     Dates: start: 20150311, end: 20150320
  20. ELNEOPA NO.2 [Concomitant]
     Active Substance: AMINO ACIDS\CARBOHYDRATES\ELECTROLYTES NOS\VITAMINS
     Dosage: 2000 ML, UNK
     Route: 041
     Dates: start: 20150310, end: 20150310
  21. INTRALIPOS [Concomitant]
     Active Substance: SOYBEAN OIL
     Dosage: 100 ML, UNK
     Route: 041
     Dates: start: 20150318, end: 20150318
  22. HISHIPHAGENC [Concomitant]
     Indication: DRUG-INDUCED LIVER INJURY
     Dosage: 40 ML, UNK
     Route: 042
     Dates: start: 20150309, end: 20150316
  23. ASPARA POTASSIUM [Concomitant]
     Active Substance: POTASSIUM ASPARTATE
     Dosage: 10 ML, UNK
     Route: 041
     Dates: start: 20150305, end: 20150309
  24. LASIX [Suspect]
     Active Substance: FUROSEMIDE
     Dosage: 40 MG, UNK
     Route: 041
     Dates: start: 20150304, end: 20150312
  25. RIZE                               /00624801/ [Concomitant]
     Active Substance: CLOTIAZEPAM
     Indication: INSOMNIA
     Dosage: 5 MG, QD
     Route: 048
     Dates: end: 20150311
  26. CRAVIT [Concomitant]
     Active Substance: LEVOFLOXACIN
     Indication: FEBRILE NEUTROPENIA
     Dosage: 500 MG, UNK
     Route: 041
     Dates: start: 20150310, end: 20150310
  27. CRAVIT [Concomitant]
     Active Substance: LEVOFLOXACIN
     Dosage: 250 MG, UNK
     Route: 041
     Dates: start: 20150311, end: 20150316
  28. ELNEOPA NO.2 [Concomitant]
     Active Substance: AMINO ACIDS\CARBOHYDRATES\ELECTROLYTES NOS\VITAMINS
     Dosage: 1500 ML, UNK
     Route: 041
     Dates: start: 20150311, end: 20150319
  29. VFEND [Suspect]
     Active Substance: VORICONAZOLE
     Dosage: 400 MG, UNK
     Route: 041
     Dates: start: 20150308, end: 20150311
  30. GASLON [Concomitant]
     Active Substance: IRSOGLADINE MALEATE
     Indication: PROPHYLAXIS AGAINST GASTROINTESTINAL ULCER
     Dosage: 2 MG, BID
     Route: 048
     Dates: end: 20150311
  31. ELNEOPA NO.1 [Concomitant]
     Indication: HYPOPHAGIA
     Dosage: 2000 ML, UNK
     Route: 041
     Dates: start: 20150303, end: 20150303
  32. ELNEOPA NO.2 [Concomitant]
     Active Substance: AMINO ACIDS\CARBOHYDRATES\ELECTROLYTES NOS\VITAMINS
     Indication: HYPOPHAGIA
     Dosage: 1500 ML, UNK
     Route: 041
     Dates: start: 20150305, end: 20150309
  33. INTRALIPOS [Concomitant]
     Active Substance: SOYBEAN OIL
     Indication: HYPOPHAGIA
     Dosage: 100 ML, UNK
     Route: 041
     Dates: start: 20150305, end: 20150309
  34. GASTER [Concomitant]
     Active Substance: FAMOTIDINE
     Indication: PROPHYLAXIS AGAINST GASTROINTESTINAL ULCER
     Dosage: 20 MG, UNK
     Route: 042
     Dates: start: 20150308, end: 20150320
  35. PERAZOLIN [Concomitant]
     Active Substance: SOBUZOXANE
     Indication: ANGIOIMMUNOBLASTIC T-CELL LYMPHOMA
     Dosage: UNK
     Route: 048
     Dates: start: 20150204
  36. PREDONINE [Concomitant]
     Active Substance: PREDNISOLONE\PREDNISOLONE ACETATE\PREDNISOLONE SODIUM SUCCINATE
     Indication: ANGIOIMMUNOBLASTIC T-CELL LYMPHOMA
     Dosage: UNK
     Route: 048
     Dates: start: 20150204
  37. MAXIPIME [Suspect]
     Active Substance: CEFEPIME HYDROCHLORIDE
     Indication: FEBRILE NEUTROPENIA
     Dosage: 2 G, UNK
     Route: 041
     Dates: start: 20150302, end: 20150302
  38. MAXIPIME [Suspect]
     Active Substance: CEFEPIME HYDROCHLORIDE
     Dosage: 4 G, UNK
     Route: 041
     Dates: start: 20150303, end: 20150309
  39. PARIET [Concomitant]
     Active Substance: RABEPRAZOLE SODIUM
     Indication: PROPHYLAXIS AGAINST GASTROINTESTINAL ULCER
     Dosage: 10 MG, QD
     Route: 048
     Dates: end: 20150311
  40. BAKTAR [Concomitant]
     Active Substance: SULFAMETHOXAZOLE\TRIMETHOPRIM
     Indication: ANTIFUNGAL PROPHYLAXIS
     Dosage: 1 DF, QD
     Route: 048
     Dates: end: 20150310
  41. BFLUID [Concomitant]
     Active Substance: AMINO ACIDS\DEXTROSE\ELECTROLYTES NOS\VITAMINS
     Indication: HYPOPHAGIA
     Dosage: 500 ML, UNK
     Route: 041
     Dates: start: 20150303, end: 20150303
  42. HISHIPHAGENC [Concomitant]
     Dosage: 80 ML, UNK
     Route: 042
     Dates: start: 20150320, end: 20150320

REACTIONS (6)
  - Hypoalbuminaemia [Not Recovered/Not Resolved]
  - Drug-induced liver injury [Not Recovered/Not Resolved]
  - Cardiac failure congestive [Recovered/Resolved]
  - Bronchopulmonary aspergillosis [Recovering/Resolving]
  - Hypokalaemia [Recovered/Resolved]
  - Pseudomembranous colitis [Not Recovered/Not Resolved]

NARRATIVE: CASE EVENT DATE: 20150302
